FAERS Safety Report 4885757-8 (Version None)
Quarter: 2006Q1

REPORT INFORMATION
  Report Type: 
  Country: None (occurrence: None)
  Receive Date: 20060117
  Receipt Date: 20060109
  Transmission Date: 20060701
  Serious: Yes (Other)
  Sender: FDA-Public Use
  Company Number: 108680ISR

PATIENT
  Age: 35 Year
  Sex: Female

DRUGS (1)
  1. GLATIRAMER ACETATE [Suspect]
     Dosage: SUBCUTANEOUS
     Route: 058
     Dates: start: 20020401

REACTIONS (1)
  - MELANOCYTIC NAEVUS [None]
